FAERS Safety Report 10633865 (Version 4)
Quarter: 2015Q3

REPORT INFORMATION
  Report Type: Spontaneous
  Country: US (occurrence: US)
  Receive Date: 20141205
  Receipt Date: 20150911
  Transmission Date: 20151125
  Serious: Yes (Other)
  Sender: FDA-Public Use
  Company Number: US-ASTELLAS-2014US018845

PATIENT
  Sex: Male

DRUGS (1)
  1. XTANDI [Suspect]
     Active Substance: ENZALUTAMIDE
     Indication: PROSTATE CANCER
     Route: 048
     Dates: start: 20141105

REACTIONS (5)
  - Fatigue [Unknown]
  - Hepatic cancer [Unknown]
  - Pleural neoplasm [Unknown]
  - Blood glucose increased [Unknown]
  - Memory impairment [Unknown]
